FAERS Safety Report 22979797 (Version 2)
Quarter: 2023Q4

REPORT INFORMATION
  Report Type: Spontaneous
  Country: US (occurrence: US)
  Receive Date: 20230925
  Receipt Date: 20231010
  Transmission Date: 20240110
  Serious: No
  Sender: FDA-Public Use
  Company Number: US-PFIZER INC-PV202300159900

PATIENT
  Age: 37 Year
  Sex: Female

DRUGS (2)
  1. SULFASALAZINE [Suspect]
     Active Substance: SULFASALAZINE
     Indication: Colitis ulcerative
     Dosage: 2 DF, 2X/DAY
  2. SULFASALAZINE [Suspect]
     Active Substance: SULFASALAZINE
     Dosage: 3 DF, 2X/DAY

REACTIONS (4)
  - Drug ineffective [Unknown]
  - Intentional product use issue [Unknown]
  - C-reactive protein increased [Unknown]
  - Pain [Not Recovered/Not Resolved]
